FAERS Safety Report 19839595 (Version 1)
Quarter: 2021Q3

REPORT INFORMATION
  Report Type: Spontaneous
  Country: DE (occurrence: DE)
  Receive Date: 20210916
  Receipt Date: 20210916
  Transmission Date: 20211014
  Serious: Yes (Hospitalization, Other)
  Sender: FDA-Public Use
  Company Number: DE-TEVA-2021-DE-1951539

PATIENT
  Age: 65 Year
  Sex: Male
  Weight: 67 kg

DRUGS (10)
  1. INSULIN ASPART [Concomitant]
     Active Substance: INSULIN ASPART
     Dosage: 1 IU, 7?5?4?0,
     Route: 058
  2. ZOPICLON [Concomitant]
     Active Substance: ZOPICLONE
     Dosage: 7.5 MG, 0?0?0.5?0,
     Route: 048
  3. IBRUTINIB [Suspect]
     Active Substance: IBRUTINIB
     Dosage: 560 MILLIGRAM DAILY; 0?1?0?0:MEDICATION ERRORS
     Route: 048
  4. FENOTEROL/IPRATROPIUMBROMID [Concomitant]
     Dosage: 0.039 | 0.02 MG, REQUIREMENT, METERED DOSE INHALER
     Route: 055
  5. AMIODARON [Suspect]
     Active Substance: AMIODARONE
     Dosage: 200 MILLIGRAM DAILY; 1?0?0?0
     Route: 048
  6. FORMOTEROL [Concomitant]
     Active Substance: FORMOTEROL
     Dosage: 4 DOSAGE FORMS DAILY; 12 UG, 2?0?2?0, HPI
     Route: 055
  7. TORASEMID [Concomitant]
     Active Substance: TORSEMIDE
     Dosage: 5 MG, 3?0?0?0
     Route: 048
  8. PANKREAS?PULVER VOM SCHWEIN [Concomitant]
     Dosage: 75000 IU (INTERNATIONAL UNIT) DAILY; 1?1?1?0, KMP
     Route: 048
  9. BISOPROLOL [Concomitant]
     Active Substance: BISOPROLOL
     Dosage: 2.5 MG, 2?0?1?0
     Route: 048
  10. EDOXABAN [Concomitant]
     Active Substance: EDOXABAN TOSYLATE
     Dosage: 60 MILLIGRAM DAILY; 1?0?0?0
     Route: 048

REACTIONS (6)
  - Dyspnoea [Unknown]
  - Angina pectoris [Unknown]
  - Palpitations [Unknown]
  - Atrial fibrillation [Unknown]
  - Product prescribing error [Unknown]
  - Tachycardia [Unknown]
